FAERS Safety Report 6073137-1 (Version None)
Quarter: 2009Q1

REPORT INFORMATION
  Report Type: 
  Country: None (occurrence: None)
  Receive Date: 20090211
  Receipt Date: 20090202
  Transmission Date: 20090719
  Serious: Yes (Other)
  Sender: FDA-Public Use
  Company Number: US-ALLERGAN-0901259US

PATIENT

DRUGS (3)
  1. ACULAR LS [Suspect]
     Indication: DRUG USE FOR UNKNOWN INDICATION
  2. PRED FORTE [Suspect]
     Indication: DRUG USE FOR UNKNOWN INDICATION
  3. RESTASIS [Suspect]
     Indication: DRUG USE FOR UNKNOWN INDICATION

REACTIONS (2)
  - CORNEAL SCAR [None]
  - ULCERATIVE KERATITIS [None]
